FAERS Safety Report 13928661 (Version 1)
Quarter: 2017Q3

REPORT INFORMATION
  Report Type: Spontaneous
  Country: CA (occurrence: CA)
  Receive Date: 20170901
  Receipt Date: 20170901
  Transmission Date: 20171127
  Serious: Yes (Hospitalization)
  Sender: FDA-Public Use
  Company Number: CA-PFIZER INC-2017373227

PATIENT
  Age: 83 Year
  Sex: Female
  Weight: 45.35 kg

DRUGS (7)
  1. TRACLEER [Concomitant]
     Active Substance: BOSENTAN
  2. METOPROLOL. [Concomitant]
     Active Substance: METOPROLOL
  3. DIGOXIN. [Concomitant]
     Active Substance: DIGOXIN
  4. TAVIDAN [Concomitant]
  5. FUROSEMIDE. [Concomitant]
     Active Substance: FUROSEMIDE
  6. REVATIO [Suspect]
     Active Substance: SILDENAFIL CITRATE
     Indication: PULMONARY HYPERTENSION
     Dosage: 20 MG, UNK
     Route: 048
     Dates: start: 20170505
  7. PRADAXA [Concomitant]
     Active Substance: DABIGATRAN ETEXILATE MESYLATE

REACTIONS (1)
  - Oxygen saturation decreased [Unknown]

NARRATIVE: CASE EVENT DATE: 20170824
